FAERS Safety Report 8291418-8 (Version None)
Quarter: 2012Q2

REPORT INFORMATION
  Report Type: 
  Country: None (occurrence: None)
  Receive Date: 20120417
  Receipt Date: 20120412
  Transmission Date: 20120825
  Serious: Yes (Other)
  Sender: FDA-Public Use
  Company Number: JP-GLAXOSMITHKLINE-B0795808A

PATIENT
  Sex: Male

DRUGS (3)
  1. LAMICTAL [Suspect]
     Indication: BIPOLAR DISORDER
     Dosage: 25MG ALTERNATE DAYS
     Route: 048
  2. VALPROATE SODIUM [Concomitant]
     Route: 048
  3. LITHIUM CARBONATE [Concomitant]
     Route: 048

REACTIONS (1)
  - PERSECUTORY DELUSION [None]
